FAERS Safety Report 16272563 (Version 2)
Quarter: 2019Q2

REPORT INFORMATION
  Report Type: Spontaneous
  Country: US (occurrence: US)
  Receive Date: 20190506
  Receipt Date: 20190513
  Transmission Date: 20190711
  Serious: No
  Sender: FDA-Public Use
  Company Number: US-BRISTOL-MYERS SQUIBB COMPANY-BMS-2019-043297

PATIENT
  Sex: Female
  Weight: 68.93 kg

DRUGS (3)
  1. ORENCIA [Suspect]
     Active Substance: ABATACEPT
     Indication: POST LAMINECTOMY SYNDROME
     Route: 065
  2. ORENCIA [Suspect]
     Active Substance: ABATACEPT
     Indication: FRACTURE
     Route: 065
  3. ORENCIA [Suspect]
     Active Substance: ABATACEPT
     Indication: OSTEOPOROSIS
     Dosage: 125 MILLIGRAM, QWK
     Route: 058
     Dates: start: 201903

REACTIONS (3)
  - Product use in unapproved indication [Unknown]
  - Product dose omission [Unknown]
  - Cough [Unknown]
